FAERS Safety Report 8510433-X (Version None)
Quarter: 2012Q3

REPORT INFORMATION
  Report Type: 
  Country: None (occurrence: None)
  Receive Date: 20120714
  Receipt Date: 20120709
  Transmission Date: 20120928
  Serious: Yes (Other)
  Sender: FDA-Public Use
  Company Number: PHHY2012JP059583

PATIENT
  Age: 44 Year
  Sex: Male

DRUGS (1)
  1. CYCLOSPORINE [Suspect]
     Indication: BEHCET'S SYNDROME
     Route: 048

REACTIONS (1)
  - RHABDOMYOLYSIS [None]
